FAERS Safety Report 7063512-0 (Version None)
Quarter: 2010Q4

REPORT INFORMATION
  Report Type: 
  Country: None (occurrence: None)
  Receive Date: 20101026
  Receipt Date: 20100406
  Transmission Date: 20110411
  Serious: No
  Sender: FDA-Public Use
  Company Number: US-ABBOTT-10P-163-0638222-00

PATIENT
  Sex: Female

DRUGS (1)
  1. LUPRON DEPOT [Suspect]
     Indication: ENDOMETRIOSIS
     Route: 050
     Dates: start: 20100401

REACTIONS (5)
  - BLOOD PRESSURE INCREASED [None]
  - GASTRIC DISORDER [None]
  - GASTROINTESTINAL SOUNDS ABNORMAL [None]
  - HOT FLUSH [None]
  - NERVOUSNESS [None]
